FAERS Safety Report 6693211-6 (Version None)
Quarter: 2010Q2

REPORT INFORMATION
  Report Type: 
  Country: None (occurrence: None)
  Receive Date: 20100421
  Receipt Date: 20100421
  Transmission Date: 20101027
  Serious: Yes (Other)
  Sender: FDA-Public Use
  Company Number: None

PATIENT
  Sex: Male
  Weight: 95.2554 kg

DRUGS (1)
  1. SYNTHROID [Suspect]
     Indication: HYPOTHYROIDISM
     Dosage: 1 PILL ONCE A DAY PO
     Route: 048
     Dates: start: 20080915, end: 20090501

REACTIONS (5)
  - ALOPECIA [None]
  - ALOPECIA UNIVERSALIS [None]
  - DEFORMITY [None]
  - MADAROSIS [None]
  - ONYCHOMADESIS [None]
